FAERS Safety Report 6665496-3 (Version None)
Quarter: 2010Q2

REPORT INFORMATION
  Report Type: 
  Country: None (occurrence: None)
  Receive Date: 20100402
  Receipt Date: 20100324
  Transmission Date: 20101027
  Serious: Yes (Other)
  Sender: FDA-Public Use
  Company Number: US-PFIZER INC-2010004383

PATIENT
  Sex: Male

DRUGS (2)
  1. SUTENT [Suspect]
     Indication: METASTATIC RENAL CELL CARCINOMA
     Dosage: 50 MG, 1X/DAY, X 28 DAYS Q 42 DAYS
     Dates: start: 20081031
  2. SUTENT [Suspect]
     Dosage: 37.5 MG, 1X/DAY, X 28 DAYS Q 42 DAYS
     Dates: start: 20081031, end: 20081231

REACTIONS (8)
  - BLOOD GLUCOSE DECREASED [None]
  - CLAVICLE FRACTURE [None]
  - CONFUSIONAL STATE [None]
  - DEPRESSED MOOD [None]
  - HALLUCINATION [None]
  - IMPAIRED HEALING [None]
  - SKIN ULCER [None]
  - SUICIDE ATTEMPT [None]
